FAERS Safety Report 6686014-X (Version None)
Quarter: 2010Q2

REPORT INFORMATION
  Report Type: 
  Country: None (occurrence: None)
  Receive Date: 20100414
  Receipt Date: 20100403
  Transmission Date: 20101027
  Serious: Yes (Death)
  Sender: FDA-Public Use
  Company Number: 2009BM000302

PATIENT
  Age: 12 Year
  Sex: Female
  Weight: 14.9 kg

DRUGS (5)
  1. NAGLAZYME [Suspect]
     Indication: MUCOPOLYSACCHARIDOSIS VI
     Dosage: 20 MG; QW; IVDRP
     Route: 041
     Dates: start: 20090301, end: 20091001
  2. ANTIBIOTICS [Concomitant]
  3. PHENOBARB [Concomitant]
  4. ACETAMINOPHEN [Concomitant]
  5. BENADRYL [Concomitant]

REACTIONS (2)
  - CARDIO-RESPIRATORY ARREST [None]
  - CHOKING [None]
